FAERS Safety Report 6338581-3 (Version None)
Quarter: 2009Q3

REPORT INFORMATION
  Report Type: 
  Country: None (occurrence: None)
  Receive Date: 20090903
  Receipt Date: 20090824
  Transmission Date: 20100115
  Serious: Yes (Other)
  Sender: FDA-Public Use
  Company Number: GB-RANBAXY-2008RR-18963

PATIENT
  Age: 42 Year
  Sex: Male

DRUGS (5)
  1. CIPROFLAXACIN [Suspect]
     Indication: OSTEOMYELITIS
     Route: 065
  2. LINEZOLIDE [Suspect]
     Indication: OSTEOMYELITIS
     Route: 048
  3. MEROPENEM [Suspect]
     Indication: OSTEOMYELITIS
     Route: 065
  4. VANCOMYCIN [Suspect]
     Indication: OSTEOMYELITIS
  5. PYOSTACINE [Suspect]
     Indication: OSTEOMYELITIS
     Dosage: UNK

REACTIONS (3)
  - DRUG INEFFECTIVE [None]
  - MULTIPLE-DRUG RESISTANCE [None]
  - TREATMENT FAILURE [None]
